FAERS Safety Report 6541713-5 (Version None)
Quarter: 2010Q1

REPORT INFORMATION
  Report Type: 
  Country: None (occurrence: None)
  Receive Date: 20100119
  Receipt Date: 20100111
  Transmission Date: 20100710
  Serious: Yes (Other)
  Sender: FDA-Public Use
  Company Number: US-AMGEN-US385171

PATIENT
  Sex: Female

DRUGS (9)
  1. NPLATE [Suspect]
     Indication: IDIOPATHIC THROMBOCYTOPENIC PURPURA
     Route: 065
  2. SYNTHROID [Concomitant]
     Route: 065
  3. ATENOLOL [Concomitant]
     Route: 065
  4. ADVAIR [Concomitant]
     Route: 065
  5. PREVACID [Concomitant]
     Route: 065
  6. MEVACOR [Concomitant]
     Route: 065
  7. VITAMIN D [Concomitant]
     Route: 065
  8. LASIX [Concomitant]
     Route: 065
  9. CALCIUM [Concomitant]
     Route: 065

REACTIONS (2)
  - PLATELET COUNT DECREASED [None]
  - THERAPEUTIC RESPONSE DECREASED [None]
